FAERS Safety Report 23996820 (Version 2)
Quarter: 2024Q3

REPORT INFORMATION
  Report Type: Report from Study
  Country: US (occurrence: US)
  Receive Date: 20240620
  Receipt Date: 20240806
  Transmission Date: 20241016
  Serious: Yes (Hospitalization)
  Sender: JOHNSON AND JOHNSON
  Company Number: US-JNJFOC-20240557502

PATIENT
  Age: 70 Year
  Sex: Male
  Weight: 75 kg

DRUGS (30)
  1. SELEXIPAG [Suspect]
     Active Substance: SELEXIPAG
     Indication: Pulmonary arterial hypertension
     Dosage: DAILY
     Route: 048
  2. SELEXIPAG [Suspect]
     Active Substance: SELEXIPAG
     Indication: Pulmonary arterial hypertension
     Route: 048
     Dates: start: 20221220, end: 20240502
  3. ELIQUIS [Concomitant]
     Active Substance: APIXABAN
  4. OPSUMIT [Concomitant]
     Active Substance: MACITENTAN
  5. ALPRAZOLAM [Concomitant]
     Active Substance: ALPRAZOLAM
     Dosage: 1 MG TAB
  6. ATORVASTATIN [Concomitant]
     Active Substance: ATORVASTATIN
     Dosage: 40MG TAB
  7. D3 DOL 1000 [Concomitant]
     Dosage: 25MCG 1 BY MOUTH EVERY DAY
  8. DIGOXIN [Concomitant]
     Active Substance: DIGOXIN
     Dosage: 125 MCG 1 TAB BY MOUTH EVERY DAY
  9. ATROPINE\DIPHENOXYLATE [Concomitant]
     Active Substance: ATROPINE\DIPHENOXYLATE
     Dosage: 2.5 TO 0.025 MG TAB?TAKE ONE TAB BY MOUTH EVERY 4 HOURS AS NEEDED FOR UP TO 10 DAYS
  10. ENTRESTO [Concomitant]
     Active Substance: SACUBITRIL\VALSARTAN
     Dosage: 24 TO 26 MG ?1 TAB BY MOUTH BID
  11. EZETIMIBE [Concomitant]
     Active Substance: EZETIMIBE
     Dosage: 10MG TAB DAILY BY MOUTH
  12. GABAPENTIN [Concomitant]
     Active Substance: GABAPENTIN
     Dosage: 100MG CAPS?TAKE 2-3 PILLS AT BED TIME
  13. JARDIANCE [Concomitant]
     Active Substance: EMPAGLIFLOZIN
     Dosage: 10 MG DAILY ?1 TAB BY MOUTH
  14. LOPERAMIDE [Concomitant]
     Active Substance: LOPERAMIDE
     Dosage: 2MG CAPS?TAKE 1-2 CAPS BY MOUTH EVERY 6 HOURS
  15. METFORMIN [Concomitant]
     Active Substance: METFORMIN HYDROCHLORIDE
     Dosage: 500 MG?2 TAB BY MOUTH WITH BREAKFAST AND 2 WITH DINNER
  16. VITAMINS NOS [Concomitant]
     Active Substance: VITAMINS
  17. NPLATE [Concomitant]
     Active Substance: ROMIPLOSTIM
  18. FISH OIL [Concomitant]
     Active Substance: FISH OIL
     Dosage: 1000MG CAPS
  19. OMEPRAZOLE [Concomitant]
     Active Substance: OMEPRAZOLE
     Dosage: 20MG CPDR
  20. PANTOPRAZOLE [Concomitant]
     Active Substance: PANTOPRAZOLE
     Dosage: 40 MG TABS
  21. PRAZOSIN [Concomitant]
     Active Substance: PRAZOSIN
     Dosage: 1 MG CAP
  22. PRIVIGEN [Concomitant]
     Active Substance: HUMAN IMMUNOGLOBULIN G
  23. PROPRANOLOL [Concomitant]
     Active Substance: PROPRANOLOL HYDROCHLORIDE
  24. QUETIAPINE [Concomitant]
     Active Substance: QUETIAPINE
     Dosage: 100 MG TAB
  25. SERTRALINE [Concomitant]
     Active Substance: SERTRALINE HYDROCHLORIDE
     Dosage: 50 MG TAB
  26. SITAGLIPTIN [Concomitant]
     Active Substance: SITAGLIPTIN
  27. SODIUM BICARBONATE [Concomitant]
     Active Substance: SODIUM BICARBONATE
     Dosage: 650 MG
  28. SPIRONOLACTONE [Concomitant]
     Active Substance: SPIRONOLACTONE
  29. TADALAFIL [Concomitant]
     Active Substance: TADALAFIL
     Dosage: 20 MG TABS
  30. TORSEMIDE [Concomitant]
     Active Substance: TORSEMIDE
     Dosage: 10 MG TABS

REACTIONS (2)
  - Dehydration [Recovered/Resolved]
  - Diarrhoea [Not Recovered/Not Resolved]

NARRATIVE: CASE EVENT DATE: 20240502
